FAERS Safety Report 8520353-2 (Version None)
Quarter: 2012Q3

REPORT INFORMATION
  Report Type: 
  Country: None (occurrence: None)
  Receive Date: 20120712
  Receipt Date: 20120712
  Transmission Date: 20120928
  Serious: Yes (Other)
  Sender: FDA-Public Use
  Company Number: None

PATIENT
  Age: 70 Year
  Sex: Female
  Weight: 68.0396 kg

DRUGS (2)
  1. (SCHIFF) MEGA RED [Suspect]
     Indication: DRUG THERAPY
     Dosage: 1 PILL PER DAY MOUTH
     Route: 048
     Dates: start: 20120617, end: 20120620
  2. IBUPROFEN [Suspect]
     Indication: MUSCULOSKELETAL PAIN
     Dosage: 2 (250 MG. TAB) AT NIGHT MOUTH
     Route: 048
     Dates: start: 20120621

REACTIONS (5)
  - NIGHTMARE [None]
  - ABDOMINAL DISCOMFORT [None]
  - HEART RATE INCREASED [None]
  - MOUTH ULCERATION [None]
  - MALAISE [None]
